FAERS Safety Report 7973275-X (Version None)
Quarter: 2011Q4

REPORT INFORMATION
  Report Type: 
  Country: None (occurrence: None)
  Receive Date: 20111213
  Receipt Date: 20111209
  Transmission Date: 20120403
  Serious: Yes (Death, Other)
  Sender: FDA-Public Use
  Company Number: PHEH2006US03646

PATIENT
  Sex: Female
  Weight: 58.957 kg

DRUGS (14)
  1. POTASSIUM CHLORIDE [Concomitant]
     Dosage: 10 MEQ, BID
  2. VITAMIN E [Concomitant]
     Dosage: 400 IU, QD
  3. ANTINEOPLASTIC AGENTS [Concomitant]
     Dosage: UNK, UNK
     Dates: end: 20050201
  4. RADIATION [Concomitant]
     Dates: end: 20041001
  5. FASLODEX [Concomitant]
     Dosage: UNK, QMO
  6. FEMARA [Concomitant]
     Dosage: 2.5 MG, UNK
  7. ZOMETA [Suspect]
     Indication: METASTASES TO BONE
     Dosage: MONTHLY
     Dates: end: 20051001
  8. ANTINEOPLASTIC AGENTS [Concomitant]
     Dosage: UNK
     Dates: start: 20060301
  9. AREDIA [Suspect]
     Dosage: MONTHLY
  10. TYLENOL W/ CODEINE NO. 3 [Concomitant]
  11. DEXAMETHASONE [Concomitant]
  12. TRIAMTERENE [Concomitant]
     Dosage: UNK, QD
  13. VITAMIN B-12 [Concomitant]
     Dosage: 500 MG, QD
  14. DYAZIDE [Concomitant]

REACTIONS (12)
  - NEOPLASM PROGRESSION [None]
  - BONE DISORDER [None]
  - TONGUE DISORDER [None]
  - PRIMARY SEQUESTRUM [None]
  - PAIN [None]
  - ANXIETY [None]
  - DECREASED INTEREST [None]
  - ORAL PAIN [None]
  - SWOLLEN TONGUE [None]
  - BACTERIAL INFECTION [None]
  - OSTEONECROSIS OF JAW [None]
  - NEOPLASM MALIGNANT [None]
